FAERS Safety Report 7690405 (Version 15)
Quarter: 2016Q4

REPORT INFORMATION
  Report Type: Report from Study
  Country: JP (occurrence: JP)
  Receive Date: 20101202
  Receipt Date: 20161230
  Transmission Date: 20170207
  Serious: Yes (Death, Life-Threatening, Hospitalization, Other)
  Sender: FDA-Public Use
  Company Number: PHHY2010JP79093

PATIENT
  Age: 59 Year
  Sex: Male
  Weight: 60 kg

DRUGS (11)
  1. CRAVIT [Concomitant]
     Active Substance: LEVOFLOXACIN
     Indication: PRODUCT USED FOR UNKNOWN INDICATION
     Dosage: 500 MG, UNK
     Route: 048
     Dates: start: 20101014, end: 20101021
  2. VOLTAREN [Concomitant]
     Active Substance: DICLOFENAC SODIUM
     Indication: PRODUCT USED FOR UNKNOWN INDICATION
     Dosage: 150 MG, UNK
     Route: 054
     Dates: start: 20101014, end: 20101021
  3. MUCOSTA [Concomitant]
     Active Substance: REBAMIPIDE
     Indication: PRODUCT USED FOR UNKNOWN INDICATION
     Dosage: 300 MEQ/KG, UNK
     Route: 048
  4. NAIXAN [Concomitant]
     Active Substance: NAPROXEN SODIUM
     Indication: PRODUCT USED FOR UNKNOWN INDICATION
     Dosage: 300 MG, UNK
     Route: 048
     Dates: start: 20100805
  5. EVEROLIMUS [Suspect]
     Active Substance: EVEROLIMUS
     Indication: RENAL CELL CARCINOMA
     Dosage: 10 MG, QD
     Route: 048
     Dates: start: 20100514, end: 20101014
  6. EVEROLIMUS [Suspect]
     Active Substance: EVEROLIMUS
     Indication: METASTATIC RENAL CELL CARCINOMA
     Dosage: 10 MG, QD
     Route: 048
     Dates: start: 20101102, end: 20101109
  7. FERROMIA [Concomitant]
     Active Substance: FERROUS CITRATE
     Indication: PRODUCT USED FOR UNKNOWN INDICATION
     Dosage: 100 MG, UNK
     Route: 048
     Dates: start: 20100930, end: 20101013
  8. POLARAMINE [Concomitant]
     Active Substance: DEXCHLORPHENIRAMINE MALEATE
     Indication: PRODUCT USED FOR UNKNOWN INDICATION
     Dosage: 2 MG, UNK
     Route: 048
     Dates: start: 20100915
  9. RESTAMIN CORTIZON [Concomitant]
     Indication: PRODUCT USED FOR UNKNOWN INDICATION
     Dosage: UNK
     Route: 061
     Dates: start: 20100915
  10. LOXOPROFEN [Suspect]
     Active Substance: LOXOPROFEN
     Indication: PRODUCT USED FOR UNKNOWN INDICATION
     Dosage: 180 MG
     Route: 048
     Dates: start: 20100805, end: 20100901
  11. TAKEPRON [Concomitant]
     Active Substance: LANSOPRAZOLE
     Indication: PRODUCT USED FOR UNKNOWN INDICATION
     Dosage: 30 MG, UNK
     Route: 048
     Dates: start: 20101014

REACTIONS (30)
  - Disseminated intravascular coagulation [Not Recovered/Not Resolved]
  - Pericardial effusion [Unknown]
  - Hypotension [Unknown]
  - Renal cell carcinoma [Not Recovered/Not Resolved]
  - Malignant neoplasm progression [Unknown]
  - Renal cyst [Unknown]
  - Metastases to adrenals [Unknown]
  - Hepatitis B [Fatal]
  - Faeces discoloured [Fatal]
  - Ascites [Not Recovered/Not Resolved]
  - Metastases to lymph nodes [Unknown]
  - Bronchopulmonary aspergillosis [Not Recovered/Not Resolved]
  - Hepatic atrophy [Fatal]
  - Metastases to lung [Unknown]
  - Pneumonia fungal [Unknown]
  - Malaise [Fatal]
  - Pleural effusion [Unknown]
  - Generalised oedema [Not Recovered/Not Resolved]
  - Lung abscess [Unknown]
  - Hepatic function abnormal [Not Recovered/Not Resolved]
  - Jaundice [Fatal]
  - Hepatorenal syndrome [Fatal]
  - Hepatic failure [Fatal]
  - Renal disorder [Not Recovered/Not Resolved]
  - Pneumonia [Unknown]
  - Agitation [Unknown]
  - Pallor [Fatal]
  - Delirium [Unknown]
  - Stomatitis [Recovered/Resolved]
  - Atelectasis [Not Recovered/Not Resolved]

NARRATIVE: CASE EVENT DATE: 20100708
